FAERS Safety Report 10337151 (Version 2)
Quarter: 2014Q3

REPORT INFORMATION
  Report Type: Report from Study
  Country: US (occurrence: US)
  Receive Date: 20140723
  Receipt Date: 20140723
  Transmission Date: 20150326
  Serious: Yes (Hospitalization, Other)
  Sender: FDA-Public Use
  Company Number: US-ABBVIE-13P-163-1058894-00

PATIENT
  Age: 50 Year
  Sex: Female
  Weight: 104.42 kg

DRUGS (4)
  1. HUMIRA [Suspect]
     Active Substance: ADALIMUMAB
     Indication: PSORIATIC ARTHROPATHY
     Route: 058
     Dates: start: 2012
  2. LISINOPRIL. [Concomitant]
     Active Substance: LISINOPRIL
     Indication: HYPERTENSION
  3. HUMIRA [Suspect]
     Active Substance: ADALIMUMAB
     Indication: ARTHRITIS
     Dates: start: 2013
  4. PREDNISONE. [Concomitant]
     Active Substance: PREDNISONE
     Indication: PSORIATIC ARTHROPATHY

REACTIONS (37)
  - Retching [Recovered/Resolved]
  - Abdominal distension [Recovered/Resolved]
  - Abdominal pain [Recovered/Resolved]
  - Diarrhoea [Not Recovered/Not Resolved]
  - Ileus [Unknown]
  - Injection site erythema [Not Recovered/Not Resolved]
  - Large intestine perforation [Recovered/Resolved]
  - Incisional hernia [Recovered/Resolved]
  - Staphylococcal infection [Recovered/Resolved]
  - Pancreas infection [Recovered/Resolved]
  - Nausea [Not Recovered/Not Resolved]
  - Motion sickness [Not Recovered/Not Resolved]
  - Abdominal pain upper [Recovered/Resolved]
  - Back pain [Recovered/Resolved]
  - Gastritis [Recovered/Resolved]
  - Cholelithiasis [Unknown]
  - Injection site bruising [Not Recovered/Not Resolved]
  - Pyrexia [Recovered/Resolved]
  - Feeling cold [Recovered/Resolved]
  - Hepatic infection [Recovered/Resolved]
  - Nausea [Not Recovered/Not Resolved]
  - Asthenia [Not Recovered/Not Resolved]
  - Umbilical hernia [Recovered/Resolved]
  - Gallbladder enlargement [Recovered/Resolved]
  - Abdominal pain upper [Recovered/Resolved]
  - Sepsis [Recovered/Resolved]
  - Asthma [Recovered/Resolved]
  - Injection site pruritus [Not Recovered/Not Resolved]
  - Peritonitis [Recovered/Resolved]
  - Cholecystitis infective [Recovered/Resolved]
  - Pyrexia [Recovered/Resolved]
  - Faeces discoloured [Not Recovered/Not Resolved]
  - Constipation [Not Recovered/Not Resolved]
  - Liver injury [Recovered/Resolved]
  - Nausea [Not Recovered/Not Resolved]
  - Post procedural bile leak [Recovered/Resolved]
  - Clostridium difficile infection [Not Recovered/Not Resolved]

NARRATIVE: CASE EVENT DATE: 2013
